FAERS Safety Report 17346501 (Version 1)
Quarter: 2020Q1

REPORT INFORMATION
  Report Type: Spontaneous
  Country: DE (occurrence: DE)
  Receive Date: 20200130
  Receipt Date: 20200130
  Transmission Date: 20200409
  Serious: Yes (Hospitalization, Other)
  Sender: FDA-Public Use
  Company Number: NVSC2020DE020235

PATIENT
  Sex: Female

DRUGS (22)
  1. LITHIUM. [Suspect]
     Active Substance: LITHIUM
     Dosage: UNK UNK, UNK
     Route: 065
  2. AMLODIPINE [Concomitant]
     Active Substance: AMLODIPINE BESYLATE
     Indication: PRODUCT USED FOR UNKNOWN INDICATION
     Dosage: 5 MG, QD
     Route: 065
  3. CITALOPRAM [Concomitant]
     Active Substance: CITALOPRAM HYDROBROMIDE
     Indication: PRODUCT USED FOR UNKNOWN INDICATION
     Dosage: 20 MG, QD
     Route: 065
  4. VALPROATE SODIUM. [Suspect]
     Active Substance: VALPROATE SODIUM
     Dosage: UNK
     Route: 065
  5. QUETIAPINE FUMARATE. [Suspect]
     Active Substance: QUETIAPINE FUMARATE
     Dosage: 50 ? 200 MG, QD
     Route: 065
  6. QUETIAPINE FUMARATE. [Suspect]
     Active Substance: QUETIAPINE FUMARATE
     Indication: BIPOLAR DISORDER
     Dosage: 200 MG, UNK
     Route: 065
  7. QUETIAPINE FUMARATE. [Suspect]
     Active Substance: QUETIAPINE FUMARATE
     Dosage: UNK,UNK,UNK
     Route: 065
  8. MIRTAZAPINE. [Concomitant]
     Active Substance: MIRTAZAPINE
     Indication: PRODUCT USED FOR UNKNOWN INDICATION
     Dosage: 30 MG, QD
     Route: 065
  9. VALPROATE SODIUM. [Suspect]
     Active Substance: VALPROATE SODIUM
     Dosage: 1300 ? 2500  MG, QD
     Route: 065
  10. QUETIAPINE FUMARATE. [Suspect]
     Active Substance: QUETIAPINE FUMARATE
     Dosage: 50-100 MG, QD
     Route: 048
     Dates: start: 201310
  11. ARIPIPRAZOLE. [Concomitant]
     Active Substance: ARIPIPRAZOLE
     Indication: PRODUCT USED FOR UNKNOWN INDICATION
     Dosage: 5 MG, QD
     Route: 065
  12. INSULIN HUMAN [Concomitant]
     Active Substance: INSULIN HUMAN
     Indication: GESTATIONAL DIABETES
     Dosage: 6 IU, QD
     Route: 058
     Dates: start: 2014
  13. PANTOPRAZOLE [Concomitant]
     Active Substance: PANTOPRAZOLE
     Indication: PRODUCT USED FOR UNKNOWN INDICATION
     Dosage: 40 MG, QD
     Route: 065
  14. VALPROATE SODIUM. [Suspect]
     Active Substance: VALPROATE SODIUM
     Dosage: UNK UNK,QD
     Route: 048
  15. ERGENYL CHRONO [Suspect]
     Active Substance: VALPROIC ACID
     Indication: BIPOLAR DISORDER
     Dosage: UNK UNK, QD
     Route: 048
  16. L-THYROXINE [Concomitant]
     Active Substance: LEVOTHYROXINE
     Indication: PRODUCT USED FOR UNKNOWN INDICATION
     Dosage: 75 UG, QD
     Route: 065
  17. VALPROATE SODIUM. [Suspect]
     Active Substance: VALPROATE SODIUM
     Indication: BIPOLAR DISORDER
     Dosage: 1800 MG, QD
     Route: 048
     Dates: start: 201310
  18. LITHIUM. [Suspect]
     Active Substance: LITHIUM
     Indication: BIPOLAR DISORDER
     Dosage: (900 ? 2250 MG, QD (LOW DOSE)
     Route: 048
  19. LITHIUM. [Suspect]
     Active Substance: LITHIUM
     Dosage: 900 ? 2250 MG, QD
     Route: 048
  20. LITHIUM. [Suspect]
     Active Substance: LITHIUM
     Dosage: UNK UNK, UNK
     Route: 065
  21. LAMOTRIGIN [Concomitant]
     Active Substance: LAMOTRIGINE
     Indication: PRODUCT USED FOR UNKNOWN INDICATION
     Dosage: 100 MG, QD
     Route: 065
  22. NOVORAPID [Concomitant]
     Active Substance: INSULIN ASPART
     Indication: GESTATIONAL DIABETES
     Dosage: 5.5 IU (THROUGHOUT THE DAY)
     Route: 058
     Dates: start: 2014

REACTIONS (23)
  - Polyhydramnios [Unknown]
  - Abdominal pain [Recovered/Resolved]
  - Abdominal pain [Recovered/Resolved]
  - Tremor [Unknown]
  - Diarrhoea [Unknown]
  - Weight increased [Unknown]
  - Bipolar I disorder [Unknown]
  - Blood glucose increased [Unknown]
  - Abdominal distension [Recovered/Resolved]
  - Mania [Unknown]
  - Gestational diabetes [Unknown]
  - Sciatica [Unknown]
  - Tremor [Unknown]
  - Exposure during pregnancy [Unknown]
  - Weight increased [Unknown]
  - Frequent bowel movements [Recovered/Resolved]
  - Gastric disorder [Unknown]
  - Adverse drug reaction [Unknown]
  - Sedation [Unknown]
  - Abdominal distension [Unknown]
  - Constipation [Unknown]
  - Blood glucose fluctuation [Unknown]
  - Obesity [Unknown]

NARRATIVE: CASE EVENT DATE: 2013
